FAERS Safety Report 5760253-4 (Version None)
Quarter: 2008Q2

REPORT INFORMATION
  Report Type: 
  Country: None (occurrence: None)
  Receive Date: 20080602
  Receipt Date: 20080520
  Transmission Date: 20081010
  Serious: Yes (Death, Other)
  Sender: FDA-Public Use
  Company Number: 43029-1

PATIENT
  Age: 67 Year
  Sex: Male
  Weight: 47 kg

DRUGS (1)
  1. ETOPOSIDE [Suspect]
     Indication: SMALL CELL LUNG CANCER STAGE UNSPECIFIED
     Dosage: 144MG
     Dates: start: 20071026

REACTIONS (2)
  - FEBRILE NEUTROPENIA [None]
  - SEPSIS [None]
